FAERS Safety Report 24921612 (Version 4)
Quarter: 2025Q2

REPORT INFORMATION
  Report Type: Spontaneous
  Country: JP (occurrence: JP)
  Receive Date: 20250204
  Receipt Date: 20250410
  Transmission Date: 20250717
  Serious: Yes (Death)
  Sender: AMGEN
  Company Number: JP-BEH-2025194182

PATIENT
  Age: 73 Year
  Sex: Male

DRUGS (1)
  1. TAVNEOS [Suspect]
     Active Substance: AVACOPAN
     Indication: Microscopic polyangiitis
     Route: 048

REACTIONS (1)
  - Infection [Fatal]
